FAERS Safety Report 8610329 (Version 2)
Quarter: 2012Q4

REPORT INFORMATION
  Report Type: 
  Country: JP (occurrence: JP)
  Receive Date: 20120612
  Receipt Date: 20121023
  Transmission Date: 20130627
  Serious: Yes (Death, Hospitalization)
  Sender: FDA-Public Use
  Company Number: JP-ELI_LILLY_AND_COMPANY-JP201206000466

PATIENT
  Age: 71 Year
  Sex: Male
  Weight: 60.7 kg

DRUGS (6)
  1. GEMZAR [Suspect]
     Indication: NON-SMALL CELL LUNG CANCER STAGE IIIB
     Dosage: 1600 mg, other
     Route: 042
     Dates: start: 20090310, end: 20090602
  2. GEMZAR [Suspect]
     Dosage: 1600 mg, UNK
     Route: 042
     Dates: start: 20090623, end: 20090630
  3. CARBOPLATIN [Concomitant]
     Indication: NON-SMALL CELL LUNG CANCER STAGE IIIB
     Dosage: 500 mg, other
     Route: 042
     Dates: start: 20090310, end: 20090602
  4. NORVASC [Concomitant]
     Indication: HYPERTENSION
     Dosage: 5 mg, UNK
     Route: 048
  5. MAGLAX [Concomitant]
     Dosage: 1800 mg, UNK
     Route: 048
  6. DECADRON                                /CAN/ [Concomitant]
     Indication: PROPHYLAXIS
     Dosage: 8 mg, UNK
     Route: 048
     Dates: start: 20090311, end: 20090312

REACTIONS (2)
  - Neoplasm progression [Fatal]
  - Lung disorder [Recovering/Resolving]
